FAERS Safety Report 18137684 (Version 2)
Quarter: 2021Q3

REPORT INFORMATION
  Report Type: Spontaneous
  Country: AU (occurrence: AU)
  Receive Date: 20200811
  Receipt Date: 20210913
  Transmission Date: 20211014
  Serious: Yes (Death, Other)
  Sender: FDA-Public Use
  Company Number: AU-009507513-2008AUS004763

PATIENT
  Age: 33 Year
  Sex: Male

DRUGS (1)
  1. KEYTRUDA [Suspect]
     Active Substance: PEMBROLIZUMAB
     Indication: PRIMARY MEDIASTINAL LARGE B-CELL LYMPHOMA RECURRENT
     Dosage: 200 MILLIGRAM, ONCE
     Route: 042

REACTIONS (1)
  - Primary mediastinal large B-cell lymphoma [Fatal]
